FAERS Safety Report 18676624 (Version 1)
Quarter: 2020Q4

REPORT INFORMATION
  Report Type: Spontaneous
  Country: GB (occurrence: GB)
  Receive Date: 20201229
  Receipt Date: 20201229
  Transmission Date: 20210114
  Serious: Yes (Other)
  Sender: FDA-Public Use
  Company Number: GB-PFIZER INC-2020507434

PATIENT
  Sex: Female

DRUGS (1)
  1. DEPO-MEDRONE [Suspect]
     Active Substance: METHYLPREDNISOLONE
     Dosage: UNK, 40 MG/ML

REACTIONS (2)
  - Presyncope [Recovered/Resolved]
  - Syncope [Recovered/Resolved]
